FAERS Safety Report 6378108-3 (Version None)
Quarter: 2009Q3

REPORT INFORMATION
  Report Type: 
  Country: None (occurrence: None)
  Receive Date: 20090925
  Receipt Date: 20090915
  Transmission Date: 20100115
  Serious: Yes (Death)
  Sender: FDA-Public Use
  Company Number: JP-MERCK-0909USA02892

PATIENT
  Age: 73 Year
  Sex: Female

DRUGS (16)
  1. STROMECTOL [Suspect]
     Indication: ACARODERMATITIS
     Route: 048
     Dates: start: 20090817, end: 20090817
  2. STROMECTOL [Suspect]
     Route: 048
     Dates: start: 20090831, end: 20090831
  3. PREDONINE [Concomitant]
     Route: 048
     Dates: start: 20090409, end: 20090830
  4. PREDONINE [Concomitant]
     Route: 048
     Dates: start: 20090907, end: 20090910
  5. PREDONINE [Concomitant]
     Route: 048
     Dates: start: 20090831, end: 20090906
  6. MAGMITT [Concomitant]
     Route: 048
     Dates: start: 20090409, end: 20090910
  7. ACECOL [Concomitant]
     Route: 048
     Dates: start: 20090409, end: 20090910
  8. TIAPRIDE HYDROCHLORIDE [Concomitant]
     Route: 048
     Dates: start: 20090409, end: 20090910
  9. ASPIRIN [Concomitant]
     Route: 048
     Dates: start: 20090409, end: 20090910
  10. BENIDIPINE HYDROCHLORIDE [Concomitant]
     Route: 048
     Dates: start: 20090409, end: 20090910
  11. FAMOTIDINE [Concomitant]
     Route: 048
     Dates: start: 20090409, end: 20090910
  12. FERROUS SULFATE [Concomitant]
     Route: 048
     Dates: start: 20090409, end: 20090910
  13. LIVALO [Concomitant]
     Route: 048
     Dates: start: 20090615, end: 20090910
  14. ZONISAMIDE [Concomitant]
     Route: 048
     Dates: start: 20090615, end: 20090910
  15. ALLEGRA [Concomitant]
     Route: 048
     Dates: start: 20090630, end: 20090910
  16. ATARAX [Concomitant]
     Route: 065
     Dates: start: 20090814, end: 20090910

REACTIONS (1)
  - TOXIC EPIDERMAL NECROLYSIS [None]
